FAERS Safety Report 9171957 (Version 1)
Quarter: 2013Q1

REPORT INFORMATION
  Report Type: Spontaneous
  Country: US (occurrence: None)
  Receive Date: 20130304
  Receipt Date: 20130304
  Transmission Date: 20140127
  Serious: Yes (Other)
  Sender: FDA-Public Use
  Company Number: 2013PROUSA02593

PATIENT
  Age: 64 Year
  Sex: Male
  Weight: 137.9 kg

DRUGS (8)
  1. PROVENGE (SIPULEUCEL-T) SUSPENSION [Suspect]
     Indication: PROSTATE CANCER METASTATIC
     Route: 042
     Dates: start: 20111222, end: 20111222
  2. AMLODIPINE (AMLODIPINE) [Concomitant]
  3. BICALUTAMIDE (BICALUTAMIDE) [Concomitant]
  4. GABAPENTIN (GABAPENTIN) [Concomitant]
  5. GEMFIBROZIL (GEMFIBROZIL) [Concomitant]
  6. LISINOPRIL (LISINOPRIL) [Concomitant]
  7. LOVASTATIN (LOVASTATIN) [Concomitant]
  8. METOPROLOL (METOPROLOL TARTRATE) [Concomitant]

REACTIONS (1)
  - Transient ischaemic attack [None]
